FAERS Safety Report 11804035 (Version 1)
Quarter: 2015Q4

REPORT INFORMATION
  Report Type: Report from Study
  Country: US (occurrence: US)
  Receive Date: 20151204
  Receipt Date: 20151204
  Transmission Date: 20160305
  Serious: Yes (Other)
  Sender: FDA-Public Use
  Company Number: US-JNJFOC-20151127151

PATIENT
  Age: 29 Year
  Sex: Female
  Weight: 54.43 kg

DRUGS (22)
  1. STELARA [Suspect]
     Active Substance: USTEKINUMAB
     Indication: CROHN^S DISEASE
     Route: 058
     Dates: end: 20150701
  2. STELARA [Suspect]
     Active Substance: USTEKINUMAB
     Indication: CROHN^S DISEASE
     Route: 058
     Dates: start: 20130215
  3. TYLENOL [Suspect]
     Active Substance: ACETAMINOPHEN
     Indication: HEADACHE
     Route: 048
     Dates: start: 20150109, end: 20150420
  4. PREDNISONE. [Suspect]
     Active Substance: PREDNISONE
     Indication: CROHN^S DISEASE
     Route: 048
     Dates: start: 20150802, end: 20150913
  5. CRINONE [Suspect]
     Active Substance: PROGESTERONE
     Indication: IN VITRO FERTILISATION
     Route: 061
     Dates: start: 20150116, end: 20150417
  6. VITAMIN D [Concomitant]
     Active Substance: CHOLECALCIFEROL
     Route: 048
     Dates: start: 20150109, end: 20150913
  7. PREDNISONE. [Suspect]
     Active Substance: PREDNISONE
     Indication: CROHN^S DISEASE
     Route: 048
     Dates: start: 20150430, end: 20150507
  8. FOLIC ACID. [Concomitant]
     Active Substance: FOLIC ACID
     Dosage: STARTED TAKING YEARS AGO
     Route: 048
     Dates: start: 20150109, end: 20150913
  9. BIOTIN [Concomitant]
     Active Substance: BIOTIN
     Route: 048
     Dates: start: 20150109, end: 20150913
  10. TYLENOL [Suspect]
     Active Substance: ACETAMINOPHEN
     Indication: HEADACHE
     Route: 048
     Dates: start: 20150430, end: 20150903
  11. PREDNISONE. [Suspect]
     Active Substance: PREDNISONE
     Indication: CROHN^S DISEASE
     Route: 048
     Dates: start: 20150109, end: 20150408
  12. PREDNISONE. [Suspect]
     Active Substance: PREDNISONE
     Indication: CROHN^S DISEASE
     Route: 048
     Dates: start: 20150409, end: 20150415
  13. PREDNISONE. [Suspect]
     Active Substance: PREDNISONE
     Indication: CROHN^S DISEASE
     Route: 048
     Dates: start: 20150508, end: 20150522
  14. PREDNISONE. [Suspect]
     Active Substance: PREDNISONE
     Indication: CROHN^S DISEASE
     Route: 048
     Dates: start: 20150423, end: 20150429
  15. TUMS [Suspect]
     Active Substance: CALCIUM CARBONATE
     Indication: DYSPEPSIA
     Route: 048
     Dates: start: 20150430, end: 20150903
  16. ESTRADIOL. [Suspect]
     Active Substance: ESTRADIOL
     Indication: IN VITRO FERTILISATION
     Dosage: 2 PATCHES, 2.3 TIMES A WEEK
     Route: 061
     Dates: start: 20150116, end: 20150410
  17. PREDNISONE. [Suspect]
     Active Substance: PREDNISONE
     Indication: CROHN^S DISEASE
     Route: 048
     Dates: start: 20150416, end: 20150422
  18. PREDNISONE. [Suspect]
     Active Substance: PREDNISONE
     Indication: CROHN^S DISEASE
     Route: 048
     Dates: start: 20150531, end: 20150801
  19. CALCIUM [Concomitant]
     Active Substance: CALCIUM
     Route: 048
     Dates: start: 20150109, end: 20150913
  20. PREDNISONE. [Suspect]
     Active Substance: PREDNISONE
     Indication: CROHN^S DISEASE
     Route: 048
     Dates: start: 20150523, end: 20150530
  21. PROGESTERONE. [Suspect]
     Active Substance: PROGESTERONE
     Indication: IN VITRO FERTILISATION
     Route: 050
     Dates: start: 20150121, end: 20150327
  22. ESTRADIOL. [Suspect]
     Active Substance: ESTRADIOL
     Indication: IN VITRO FERTILISATION
     Route: 048
     Dates: start: 20150116, end: 20150410

REACTIONS (5)
  - Product use issue [Unknown]
  - Off label use [Unknown]
  - Premature delivery [Recovered/Resolved]
  - Pregnancy [None]
  - Exposure during pregnancy [Recovered/Resolved]

NARRATIVE: CASE EVENT DATE: 20130215
